FAERS Safety Report 8882509 (Version 1)
Quarter: 2012Q4

REPORT INFORMATION
  Report Type: 
  Country: GB (occurrence: GB)
  Receive Date: 20121102
  Receipt Date: 20121102
  Transmission Date: 20130627
  Serious: Yes (Disabling)
  Sender: FDA-Public Use
  Company Number: GB-SANOFI-AVENTIS-2012SA079415

PATIENT
  Age: 64 Year
  Sex: Male
  Weight: 78.02 kg

DRUGS (9)
  1. LEFLUNOMIDE [Suspect]
     Indication: DRUG USE FOR UNKNOWN INDICATION
     Route: 065
     Dates: start: 20120703
  2. FOLIC ACID [Concomitant]
     Dates: start: 20120724, end: 20120821
  3. METHOTREXATE [Concomitant]
     Dates: start: 20120724, end: 20120725
  4. METHOTREXATE [Concomitant]
     Dates: start: 20120821, end: 20120822
  5. METHOTREXATE [Concomitant]
     Dates: start: 20121009, end: 20121010
  6. HAVRIX [Concomitant]
     Dates: start: 20120814, end: 20120814
  7. TYPHIM VI [Concomitant]
     Dates: start: 20120814, end: 20120814
  8. REVAXIS [Concomitant]
     Dates: start: 20120823, end: 20120823
  9. CO-DYDRAMOL [Concomitant]
     Dates: start: 20121009, end: 20121010

REACTIONS (3)
  - Alopecia [Unknown]
  - Hepatic function abnormal [Recovering/Resolving]
  - Dry skin [Unknown]
